FAERS Safety Report 5352763-9 (Version None)
Quarter: 2007Q2

REPORT INFORMATION
  Report Type: 
  Country: None (occurrence: None)
  Receive Date: 20070611
  Receipt Date: 20070529
  Transmission Date: 20071010
  Serious: No
  Sender: FDA-Public Use
  Company Number: US-ELI_LILLY_AND_COMPANY-US200705007843

PATIENT
  Age: 68 Year
  Sex: Female

DRUGS (3)
  1. CYMBALTA [Suspect]
     Indication: DIABETIC NEUROPATHY
     Dosage: 60 MG, 2/D
     Route: 048
  2. CYMBALTA [Suspect]
     Dosage: UNK MG, UNK
     Route: 048
  3. NEURONTIN [Concomitant]
     Dosage: 1600 MG, UNK

REACTIONS (1)
  - ASPARTATE AMINOTRANSFERASE INCREASED [None]
